FAERS Safety Report 9805909 (Version 3)
Quarter: 2014Q2

REPORT INFORMATION
  Report Type: Spontaneous
  Country: US (occurrence: US)
  Receive Date: 20140109
  Receipt Date: 20140623
  Transmission Date: 20141212
  Serious: Yes (Death, Hospitalization)
  Sender: FDA-Public Use
  Company Number: US-B.I. PHARMACEUTICALS,INC./RIDGEFIELD-2014-BI-00460BP

PATIENT
  Age: 44 Year
  Sex: Male
  Weight: 158.76 kg

DRUGS (7)
  1. PRADAXA [Suspect]
     Indication: ANTICOAGULANT THERAPY
     Route: 065
     Dates: start: 20100601, end: 20120101
  2. BABY ASPIRIN [Concomitant]
     Route: 065
  3. BIDIL [Concomitant]
     Route: 065
     Dates: start: 2005, end: 2012
  4. LISINOPRIL [Concomitant]
     Route: 065
     Dates: start: 2005, end: 2012
  5. ZOCOR [Concomitant]
     Route: 065
     Dates: start: 2005, end: 2012
  6. COUMADIN [Concomitant]
     Route: 065
     Dates: start: 2005, end: 2012
  7. LASIX [Concomitant]
     Route: 065
     Dates: start: 2005, end: 2012

REACTIONS (3)
  - Haemorrhagic stroke [Fatal]
  - Cerebral haemorrhage [Fatal]
  - Respiratory failure [Fatal]
